FAERS Safety Report 8797633 (Version 1)
Quarter: 2012Q4

REPORT INFORMATION
  Report Type: 
  Country: FR (occurrence: FR)
  Receive Date: 20120919
  Receipt Date: 20120919
  Transmission Date: 20130627
  Serious: Yes (Other)
  Sender: FDA-Public Use
  Company Number: FR-ROCHE-1124575

PATIENT

DRUGS (2)
  1. PEGASYS [Suspect]
     Indication: HEPATITIS C
     Route: 065
  2. COPEGUS [Suspect]
     Indication: HEPATITIS C
     Route: 065

REACTIONS (6)
  - Transplant rejection [Unknown]
  - Pancytopenia [Unknown]
  - Renal failure acute [Unknown]
  - Myocardial ischaemia [Unknown]
  - Mental disorder [Unknown]
  - Diabetes mellitus [Unknown]
